FAERS Safety Report 11796049 (Version 1)
Quarter: 2015Q4

REPORT INFORMATION
  Report Type: Spontaneous
  Country: US (occurrence: None)
  Receive Date: 20151202
  Receipt Date: 20151202
  Transmission Date: 20160305
  Serious: Yes (Hospitalization)
  Sender: FDA-Public Use
  Company Number: None

PATIENT
  Age: 64 Year
  Sex: Male
  Weight: 107 kg

DRUGS (4)
  1. LEUCOVORIN CALCIUM. [Suspect]
     Active Substance: LEUCOVORIN CALCIUM
     Dates: end: 20151103
  2. ELOXATIN [Suspect]
     Active Substance: OXALIPLATIN
     Dates: end: 20151103
  3. 5-FLUOROURACIL (5-FU) [Suspect]
     Active Substance: FLUOROURACIL
     Dates: end: 20151103
  4. CAMPTOSAR [Suspect]
     Active Substance: IRINOTECAN HYDROCHLORIDE
     Dates: end: 20151103

REACTIONS (5)
  - General physical health deterioration [None]
  - Nausea [None]
  - Disease progression [None]
  - Ascites [None]
  - Pancreatic carcinoma [None]

NARRATIVE: CASE EVENT DATE: 20151125
